FAERS Safety Report 23515571 (Version 3)
Quarter: 2024Q4

REPORT INFORMATION
  Report Type: Spontaneous
  Country: NL (occurrence: NL)
  Receive Date: 20240213
  Receipt Date: 20241107
  Transmission Date: 20250115
  Serious: Yes (Hospitalization, Other)
  Sender: CELLTRION
  Company Number: NL-CELLTRION INC.-2024NL002925

PATIENT

DRUGS (3)
  1. BEVACIZUMAB [Suspect]
     Active Substance: BEVACIZUMAB
     Indication: Neoplasm
     Dosage: 15 MG/KG, EVERY 3 WEEKS (DOSAGE TEXT: ON 12/DEC/2023, HE RECEIVED MOST RECENT DOSE OF BEVACIZUMAB)
     Route: 042
     Dates: start: 20230921
  2. ATEZOLIZUMAB [Suspect]
     Active Substance: ATEZOLIZUMAB
     Indication: Neoplasm
     Dosage: 1200 MG, EVERY 3 WEEKS (DOSAGE TEXT: ON 12/DEC/2023, HE RECEIVED MOST RECENT DOSE OF ATEZOLIZUMAB)
     Route: 042
     Dates: start: 20230921
  3. NAPROXEN [Concomitant]
     Active Substance: NAPROXEN
     Dosage: 750 MG
     Dates: start: 20231103, end: 20231227

REACTIONS (1)
  - Rectal haemorrhage [Recovered/Resolved with Sequelae]

NARRATIVE: CASE EVENT DATE: 20231227
